FAERS Safety Report 8066344-X (Version None)
Quarter: 2012Q1

REPORT INFORMATION
  Report Type: 
  Country: None (occurrence: None)
  Receive Date: 20120124
  Receipt Date: 20120112
  Transmission Date: 20120608
  Serious: Yes (Hospitalization)
  Sender: FDA-Public Use
  Company Number: NL-ELI_LILLY_AND_COMPANY-NL201201000075

PATIENT
  Sex: Female

DRUGS (6)
  1. FORTEO [Suspect]
     Indication: OSTEOPOROSIS
     Dosage: 20 UG, QD
     Route: 058
     Dates: start: 20110901
  2. FENTANYL [Concomitant]
     Indication: PAIN
  3. LEVOTHYROXINE SODIUM [Concomitant]
     Indication: THYROID DISORDER
     Dosage: 25 UG, UNK
     Dates: start: 20030101
  4. ACETAMINOPHEN [Concomitant]
     Indication: PAIN
     Dosage: 1000 MG, UNK
     Route: 054
  5. FERROUS CHLORIDE [Concomitant]
     Indication: BLOOD IRON DECREASED
     Dosage: 45 MG, UNKNOWN
     Route: 048
  6. POLYETHYLENE GLYCOL [Concomitant]
     Indication: CONSTIPATION

REACTIONS (2)
  - FEEDING TUBE COMPLICATION [None]
  - WEIGHT DECREASED [None]
